FAERS Safety Report 6857738-6 (Version None)
Quarter: 2010Q3

REPORT INFORMATION
  Report Type: 
  Country: None (occurrence: None)
  Receive Date: 20100719
  Receipt Date: 20080128
  Transmission Date: 20110219
  Serious: No
  Sender: FDA-Public Use
  Company Number: US-PFIZER INC-2008009836

PATIENT
  Sex: Male

DRUGS (1)
  1. CHANTIX [Suspect]
     Dates: start: 20071201

REACTIONS (5)
  - ABNORMAL DREAMS [None]
  - DIARRHOEA [None]
  - DYSGEUSIA [None]
  - GASTROENTERITIS VIRAL [None]
  - VOMITING [None]
